FAERS Safety Report 11971849 (Version 2)
Quarter: 2016Q1

REPORT INFORMATION
  Report Type: Report from Study
  Country: ES (occurrence: ES)
  Receive Date: 20160128
  Receipt Date: 20160311
  Transmission Date: 20160526
  Serious: Yes (Disabling)
  Sender: FDA-Public Use
  Company Number: ES-JNJFOC-20150518509

PATIENT
  Age: 72 Year
  Sex: Male
  Weight: 68 kg

DRUGS (6)
  1. USTEKINUMAB [Suspect]
     Active Substance: USTEKINUMAB
     Indication: PSORIASIS
     Route: 058
     Dates: start: 20130618, end: 20150623
  2. MASDIL [Concomitant]
     Active Substance: DILTIAZEM HYDROCHLORIDE
     Route: 048
  3. ALDACTONE [Concomitant]
     Active Substance: SPIRONOLACTONE
     Route: 048
  4. METFORMIN [Concomitant]
     Active Substance: METFORMIN HYDROCHLORIDE
     Route: 048
  5. FUROSEMIDE. [Concomitant]
     Active Substance: FUROSEMIDE
     Route: 048
  6. SINTROM [Concomitant]
     Active Substance: ACENOCOUMAROL
     Route: 048

REACTIONS (1)
  - Transitional cell carcinoma [Recovering/Resolving]

NARRATIVE: CASE EVENT DATE: 20150601
